FAERS Safety Report 4667433-X (Version None)
Quarter: 2005Q2

REPORT INFORMATION
  Report Type: 
  Country: None (occurrence: None)
  Receive Date: 20050520
  Receipt Date: 20050512
  Transmission Date: 20051028
  Serious: Yes (Hospitalization)
  Sender: FDA-Public Use
  Company Number: 200511400JP

PATIENT
  Age: 29 Year
  Sex: Female

DRUGS (2)
  1. ALLEGRA [Suspect]
     Indication: PRURITUS
     Route: 048
     Dates: start: 20050201
  2. ALLELOCK [Suspect]

REACTIONS (1)
  - RENAL DISORDER [None]
